FAERS Safety Report 18380476 (Version 1)
Quarter: 2020Q4

REPORT INFORMATION
  Report Type: Spontaneous
  Country: JP (occurrence: JP)
  Receive Date: 20201013
  Receipt Date: 20201013
  Transmission Date: 20210114
  Serious: Yes (Death, Other)
  Sender: FDA-Public Use
  Company Number: JP-ROCHE-2693198

PATIENT
  Age: 70 Year
  Sex: Male
  Weight: 67 kg

DRUGS (8)
  1. CARBOPLATIN. [Suspect]
     Active Substance: CARBOPLATIN
     Indication: SMALL CELL LUNG CANCER
     Route: 041
     Dates: start: 20200907, end: 20200907
  2. DECADRON [Concomitant]
     Active Substance: DEXAMETHASONE
     Route: 048
  3. ETOPOSIDE. [Suspect]
     Active Substance: ETOPOSIDE
     Indication: SMALL CELL LUNG CANCER
     Route: 041
     Dates: start: 20200907, end: 20200909
  4. E KEPPRA [Concomitant]
     Active Substance: LEVETIRACETAM
     Route: 048
  5. AMLODIPINE [Concomitant]
     Active Substance: AMLODIPINE BESYLATE
     Route: 048
  6. RABEPRAZOLE [Concomitant]
     Active Substance: RABEPRAZOLE
     Route: 048
  7. ELIQUIS [Concomitant]
     Active Substance: APIXABAN
     Dosage: IT DISCONTINUES TO 9/4, AND IT RESTARTS FROM 9/5.
     Route: 048
  8. TECENTRIQ [Suspect]
     Active Substance: ATEZOLIZUMAB
     Indication: SMALL CELL LUNG CANCER
     Route: 041
     Dates: start: 20200907, end: 20200907

REACTIONS (4)
  - Septic shock [Fatal]
  - Disease progression [Fatal]
  - Febrile neutropenia [Fatal]
  - Pneumonia [Unknown]

NARRATIVE: CASE EVENT DATE: 20200910
